FAERS Safety Report 5448432-7 (Version None)
Quarter: 2007Q3

REPORT INFORMATION
  Report Type: 
  Country: None (occurrence: None)
  Receive Date: 20070905
  Receipt Date: 20070811
  Transmission Date: 20080115
  Serious: No
  Sender: FDA-Public Use
  Company Number: 2007SP017338

PATIENT
  Age: 43 Year
  Sex: Female

DRUGS (1)
  1. CLARITIN [Suspect]
     Indication: MULTIPLE ALLERGIES
     Dosage: 1 DF;QD; PO
     Route: 048

REACTIONS (5)
  - BLOOD PRESSURE INCREASED [None]
  - CARDIAC FLUTTER [None]
  - HYPERSOMNIA [None]
  - PALPITATIONS [None]
  - SOMNOLENCE [None]
